FAERS Safety Report 17742161 (Version 1)
Quarter: 2020Q2

REPORT INFORMATION
  Report Type: Report from Study
  Country: ES (occurrence: ES)
  Receive Date: 20200504
  Receipt Date: 20200504
  Transmission Date: 20200714
  Serious: Yes (Life-Threatening, Hospitalization)
  Sender: FDA-Public Use
  Company Number: ES-ROCHE-2590970

PATIENT
  Age: 53 Year
  Sex: Female

DRUGS (6)
  1. RIVOTRIL [Suspect]
     Active Substance: CLONAZEPAM
     Indication: BORDERLINE PERSONALITY DISORDER
     Route: 048
     Dates: end: 20191010
  2. QUETIAPINA [QUETIAPINE] [Interacting]
     Active Substance: QUETIAPINE
     Indication: BORDERLINE PERSONALITY DISORDER
     Route: 048
     Dates: end: 20191010
  3. QUETIAPINA [QUETIAPINE] [Interacting]
     Active Substance: QUETIAPINE
     Indication: SUICIDE ATTEMPT
     Route: 048
     Dates: start: 20191011, end: 20191011
  4. ESCITALOPRAM [Concomitant]
     Active Substance: ESCITALOPRAM OXALATE
     Indication: BORDERLINE PERSONALITY DISORDER
     Route: 048
  5. RIVOTRIL [Interacting]
     Active Substance: CLONAZEPAM
     Indication: SUICIDE ATTEMPT
     Route: 048
     Dates: start: 20191011, end: 20191011
  6. PREGABALINA [Concomitant]
     Active Substance: PREGABALIN
     Indication: BORDERLINE PERSONALITY DISORDER
     Route: 048

REACTIONS (4)
  - Coma [Recovered/Resolved]
  - Respiratory depression [Recovered/Resolved]
  - Intentional overdose [Unknown]
  - Drug interaction [Unknown]

NARRATIVE: CASE EVENT DATE: 20191011
